FAERS Safety Report 21591006 (Version 1)
Quarter: 2022Q4

REPORT INFORMATION
  Report Type: Spontaneous
  Country: US (occurrence: None)
  Receive Date: 20221111
  Receipt Date: 20221111
  Transmission Date: 20230113
  Serious: Yes (unspecified)
  Sender: FDA-Public Use
  Company Number: None

PATIENT
  Age: 53 Year
  Sex: Female
  Weight: 96.75 kg

DRUGS (1)
  1. MONTELUKAST [Suspect]
     Active Substance: MONTELUKAST SODIUM
     Dosage: FREQUENCY : DAILY;?
     Route: 048
     Dates: start: 20220325, end: 20220425

REACTIONS (3)
  - Pruritus [None]
  - Rash erythematous [None]
  - Macule [None]

NARRATIVE: CASE EVENT DATE: 20220325
